FAERS Safety Report 9155190 (Version 2)
Quarter: 2013Q2

REPORT INFORMATION
  Report Type: Spontaneous
  Country: BR (occurrence: BR)
  Receive Date: 20130311
  Receipt Date: 20130410
  Transmission Date: 20140414
  Serious: Yes (Other)
  Sender: FDA-Public Use
  Company Number: PHHY2013BR022087

PATIENT
  Sex: Male

DRUGS (5)
  1. DIOVAN HCT [Suspect]
     Indication: HYPERTENSION
     Dosage: 1 DF, QD IN THE MORNING (160 MG VALS AND 12.5 MG HCTZ)
     Dates: start: 2002
  2. CATAFLAM [Suspect]
     Indication: PAIN
     Dosage: UNK UKN, PRN (USES WHEN PRESENTS PAIN)
     Dates: start: 2000
  3. CATAFLAM EMULGEL [Suspect]
     Indication: INFLAMMATION
     Dosage: UNK UKN, BID
  4. AMLOVASC [Concomitant]
     Indication: DIURETIC THERAPY
     Dosage: 1 DF, DAILY (5 MG)
     Route: 048
  5. ROXFLAN [Concomitant]
     Indication: DIURETIC THERAPY
     Dosage: 1 DF, DAILY
     Route: 048

REACTIONS (6)
  - Paralysis [Not Recovered/Not Resolved]
  - Intervertebral disc protrusion [Not Recovered/Not Resolved]
  - Sciatic nerve injury [Not Recovered/Not Resolved]
  - Gait disturbance [Not Recovered/Not Resolved]
  - Muscular weakness [Not Recovered/Not Resolved]
  - Procedural complication [Not Recovered/Not Resolved]
